FAERS Safety Report 6992158-5 (Version None)
Quarter: 2010Q3

REPORT INFORMATION
  Report Type: 
  Country: None (occurrence: None)
  Receive Date: 20100915
  Receipt Date: 20100907
  Transmission Date: 20110219
  Serious: Yes (Hospitalization)
  Sender: FDA-Public Use
  Company Number: 2010MA002428

PATIENT
  Age: 43 Year
  Sex: Male

DRUGS (2)
  1. FEVERALL [Suspect]
     Dosage: 70 DF;
  2. CLOZARIL [Suspect]
     Indication: SCHIZOPHRENIA
     Dosage: 500 MG; QD; PO
     Route: 048
     Dates: start: 20020518

REACTIONS (3)
  - ALANINE AMINOTRANSFERASE INCREASED [None]
  - DEPRESSED MOOD [None]
  - SEXUAL DYSFUNCTION [None]
